FAERS Safety Report 12694436 (Version 2)
Quarter: 2016Q3

REPORT INFORMATION
  Report Type: Spontaneous
  Country: US (occurrence: US)
  Receive Date: 20160829
  Receipt Date: 20160926
  Transmission Date: 20161109
  Serious: Yes (Other)
  Sender: FDA-Public Use
  Company Number: US-GLAXOSMITHKLINE-US2016123814

PATIENT
  Age: 30 Year
  Sex: Female

DRUGS (1)
  1. GAS-X EXTRA STRENGTH [Suspect]
     Active Substance: DIMETHICONE
     Indication: FLATULENCE
     Dosage: UNK (EIGHT A DAY)
     Route: 048

REACTIONS (4)
  - Extra dose administered [Unknown]
  - Product quality issue [Unknown]
  - Therapeutic response unexpected [Unknown]
  - Drug dependence [Unknown]
